FAERS Safety Report 15800350 (Version 3)
Quarter: 2019Q1

REPORT INFORMATION
  Report Type: Report from Study
  Country: US (occurrence: US)
  Receive Date: 20190108
  Receipt Date: 20190123
  Transmission Date: 20190417
  Serious: Yes (Hospitalization)
  Sender: FDA-Public Use
  Company Number: US-TAKEDA-2019MPI000411

PATIENT
  Age: 60 Year
  Sex: Male
  Weight: 91 kg

DRUGS (11)
  1. IXAZOMIB [Suspect]
     Active Substance: IXAZOMIB
     Dosage: 3 MG, UNK
     Route: 048
     Dates: start: 20180809
  2. METHYLPREDNISOLONE. [Concomitant]
     Active Substance: METHYLPREDNISOLONE
     Dosage: 60 MG, Q4WEEKS
     Route: 042
     Dates: start: 20180118
  3. METHYLPREDNISOLONE. [Concomitant]
     Active Substance: METHYLPREDNISOLONE
     Indication: PLASMA CELL MYELOMA
     Dosage: 100 MG, 1/WEEK
     Route: 042
     Dates: start: 20170627, end: 20170703
  4. DARZALEX [Concomitant]
     Active Substance: DARATUMUMAB
     Dosage: 16 MG/KG, Q2WEEKS
     Route: 042
     Dates: start: 20170904, end: 20171227
  5. IXAZOMIB [Suspect]
     Active Substance: IXAZOMIB
     Indication: PLASMA CELL MYELOMA
     Dosage: 4 MG, UNK
     Route: 048
     Dates: start: 20170807, end: 20180801
  6. METHYLPREDNISOLONE. [Concomitant]
     Active Substance: METHYLPREDNISOLONE
     Dosage: 60 MG, 1/WEEK
     Route: 042
     Dates: start: 20170711, end: 20170901
  7. DARZALEX [Concomitant]
     Active Substance: DARATUMUMAB
     Indication: PLASMA CELL MYELOMA
     Dosage: 16 MG/KG, 1/WEEK
     Route: 042
     Dates: start: 20170627, end: 20170901
  8. POMALYST [Concomitant]
     Active Substance: POMALIDOMIDE
     Indication: PLASMA CELL MYELOMA
     Dosage: 4 MG, UNK
     Route: 048
     Dates: start: 20170724, end: 20180904
  9. DARZALEX [Concomitant]
     Active Substance: DARATUMUMAB
     Dosage: 16 MG/KG, Q4WEEKS
     Route: 042
     Dates: start: 20180118
  10. POMALYST [Concomitant]
     Active Substance: POMALIDOMIDE
     Dosage: 3 MG, UNK
     Route: 048
     Dates: start: 20180904
  11. METHYLPREDNISOLONE. [Concomitant]
     Active Substance: METHYLPREDNISOLONE
     Dosage: 60 MG, Q2WEEKS
     Route: 042
     Dates: start: 20170918, end: 20171227

REACTIONS (1)
  - Influenza [Recovered/Resolved]

NARRATIVE: CASE EVENT DATE: 20181217
